FAERS Safety Report 5675876-0 (Version None)
Quarter: 2008Q1

REPORT INFORMATION
  Report Type: 
  Country: None (occurrence: None)
  Receive Date: 20080321
  Receipt Date: 20080307
  Transmission Date: 20080703
  Serious: Yes (Death)
  Sender: FDA-Public Use
  Company Number: GB-BAYER-200814985GPV

PATIENT

DRUGS (6)
  1. ALEMTUZUMAB [Suspect]
     Indication: IMMUNOSUPPRESSION
  2. FLUDARABINE [Suspect]
     Indication: IMMUNOSUPPRESSION
  3. CYCLOPHOSPHAMIDE [Suspect]
     Indication: BONE MARROW CONDITIONING REGIMEN
     Route: 065
  4. ANTI-CD45 MONOCLONAL ANTIBODIES (MABS) YTH24.5/YTH54.12 [Suspect]
     Indication: BONE MARROW FAILURE
     Route: 065
  5. CYCLOSPORINE [Concomitant]
     Indication: PROPHYLAXIS AGAINST GRAFT VERSUS HOST DISEASE
  6. MYCOPHENOLATE MOFETIL [Concomitant]
     Indication: PROPHYLAXIS AGAINST GRAFT VERSUS HOST DISEASE

REACTIONS (2)
  - ASPERGILLOSIS [None]
  - DISEASE PROGRESSION [None]
